FAERS Safety Report 7917080-9 (Version None)
Quarter: 2011Q4

REPORT INFORMATION
  Report Type: 
  Country: None (occurrence: None)
  Receive Date: 20111116
  Receipt Date: 20111110
  Transmission Date: 20120403
  Serious: Yes (Other)
  Sender: FDA-Public Use
  Company Number: JP-SANOFI-AVENTIS-2011SA074681

PATIENT
  Age: 60 Year
  Sex: Male

DRUGS (12)
  1. FLUOROURACIL [Suspect]
     Indication: COLON CANCER
     Route: 040
     Dates: start: 20100601
  2. FLUOROURACIL [Suspect]
     Dosage: TOTAL 3 CYCLES
     Route: 042
  3. LEVOLEUCOVORIN CALCIUM [Concomitant]
     Indication: COLON CANCER
     Route: 041
     Dates: start: 20100601
  4. BEVACIZUMAB [Concomitant]
     Indication: COLON CANCER
     Route: 041
     Dates: start: 20100601
  5. OXALIPLATIN [Suspect]
     Indication: COLON CANCER
     Route: 065
     Dates: start: 20100601
  6. OXALIPLATIN [Suspect]
     Route: 065
  7. BEVACIZUMAB [Concomitant]
     Route: 041
  8. FLUOROURACIL [Suspect]
     Dosage: TOTAL 17 CYCLES
     Dates: end: 20100401
  9. LEVOLEUCOVORIN CALCIUM [Concomitant]
     Route: 041
  10. BEVACIZUMAB [Concomitant]
     Dosage: TOTAL 17 CYCLES
     Dates: end: 20100401
  11. LEVOLEUCOVORIN CALCIUM [Concomitant]
     Dosage: TOTAL 17 CYCLES
     Dates: end: 20100401
  12. FLUOROURACIL [Suspect]
     Dosage: TOTAL 3 CYCLES
     Route: 042

REACTIONS (1)
  - HYPERAMMONAEMIA [None]
